FAERS Safety Report 7035336-1 (Version None)
Quarter: 2010Q4

REPORT INFORMATION
  Report Type: 
  Country: None (occurrence: None)
  Receive Date: 20101008
  Receipt Date: 20101001
  Transmission Date: 20110411
  Serious: Yes (Hospitalization)
  Sender: FDA-Public Use
  Company Number: Z0005659A

PATIENT
  Sex: Female
  Weight: 78 kg

DRUGS (3)
  1. PAZOPANIB [Suspect]
     Dosage: 800MG PER DAY
     Route: 048
     Dates: start: 20100701
  2. PLAVIX [Concomitant]
     Indication: ARTERIAL THROMBOSIS
     Dosage: 75MG PER DAY
     Route: 048
     Dates: start: 20100910
  3. CARDIOASPIRIN [Concomitant]
     Indication: ARTERIAL THROMBOSIS
     Dosage: 100MG PER DAY
     Route: 048
     Dates: start: 20100910

REACTIONS (1)
  - ARTERIAL THROMBOSIS [None]
